FAERS Safety Report 4936903-9 (Version None)
Quarter: 2006Q1

REPORT INFORMATION
  Report Type: 
  Country: None (occurrence: None)
  Receive Date: 20060302
  Receipt Date: 20060215
  Transmission Date: 20060701
  Serious: Yes (Hospitalization)
  Sender: FDA-Public Use
  Company Number: 230024K06GBR

PATIENT
  Sex: Female

DRUGS (1)
  1. REBIF [Suspect]
     Dosage: 44, 3 IN 1 WEEKS, SUBCUTANEOUS
     Route: 058
     Dates: start: 20051201

REACTIONS (2)
  - FALL [None]
  - LOWER RESPIRATORY TRACT INFECTION [None]
